FAERS Safety Report 23188939 (Version 3)
Quarter: 2023Q4

REPORT INFORMATION
  Report Type: Spontaneous
  Country: US (occurrence: US)
  Receive Date: 20231115
  Receipt Date: 20231212
  Transmission Date: 20240109
  Serious: No
  Sender: FDA-Public Use
  Company Number: US-BIOGEN-2023BI01235668

PATIENT
  Age: 34 Year
  Sex: Female

DRUGS (1)
  1. TYSABRI [Suspect]
     Active Substance: NATALIZUMAB
     Indication: Multiple sclerosis
     Route: 050
     Dates: start: 20210326, end: 20231020

REACTIONS (4)
  - Blood test abnormal [Not Recovered/Not Resolved]
  - Benign hepatic neoplasm [Unknown]
  - Hepatic steatosis [Unknown]
  - Liver injury [Unknown]

NARRATIVE: CASE EVENT DATE: 20230601
